FAERS Safety Report 5112609-0 (Version None)
Quarter: 2006Q3

REPORT INFORMATION
  Report Type: 
  Country: None (occurrence: None)
  Receive Date: 20060922
  Receipt Date: 20060912
  Transmission Date: 20061208
  Serious: Yes (Other)
  Sender: FDA-Public Use
  Company Number: FR-ROCHE-463213

PATIENT
  Sex: Male

DRUGS (2)
  1. ROVALCYTE [Suspect]
     Route: 048
  2. CYMEVAN [Concomitant]
     Route: 042

REACTIONS (1)
  - HYPOACUSIS [None]
